FAERS Safety Report 5964233-5 (Version None)
Quarter: 2008Q4

REPORT INFORMATION
  Report Type: 
  Country: None (occurrence: None)
  Receive Date: 20081124
  Receipt Date: 20081119
  Transmission Date: 20090506
  Serious: Yes (Other)
  Sender: FDA-Public Use
  Company Number: BR-PFIZER INC-2008038072

PATIENT
  Sex: Male
  Weight: 106 kg

DRUGS (16)
  1. DETRUSITOL LA [Suspect]
     Indication: HYPERTONIC BLADDER
     Dosage: DAILY DOSE:4MG
     Route: 048
     Dates: start: 20080401
  2. DETRUSITOL LA [Suspect]
     Indication: POLLAKIURIA
  3. DETRUSITOL LA [Suspect]
     Indication: URINARY INCONTINENCE
  4. DETRUSITOL LA [Suspect]
     Indication: BLADDER DISORDER
  5. GLIMEPIRIDE [Concomitant]
     Indication: DIABETES MELLITUS
     Route: 048
  6. PROPRANOLOL [Concomitant]
     Indication: HYPERTENSION
     Route: 048
  7. CAPTOPRIL [Concomitant]
     Indication: HYPERTENSION
     Route: 048
  8. AMITRIPTYLINE HCL [Concomitant]
     Indication: DEPRESSION
     Route: 048
  9. ALPRAZOLAM [Concomitant]
     Indication: DEPRESSION
     Route: 048
  10. PHENOBARBITAL TAB [Concomitant]
     Indication: DEPRESSION
     Route: 048
  11. FLUNARIZINE [Concomitant]
     Route: 048
  12. ACETAMINOPHEN [Concomitant]
  13. CLOXAZOLAM [Concomitant]
  14. MELOXICAM [Concomitant]
  15. CLONAZEPAM [Concomitant]
  16. TRIMEBUTINE [Concomitant]

REACTIONS (4)
  - DIZZINESS [None]
  - DRUG INEFFECTIVE [None]
  - GASTROINTESTINAL NEOPLASM [None]
  - HEADACHE [None]
